FAERS Safety Report 8676618 (Version 2)
Quarter: 2013Q4

REPORT INFORMATION
  Report Type: Report from Study
  Country: US (occurrence: US)
  Receive Date: 20120723
  Receipt Date: 20131105
  Transmission Date: 20140711
  Serious: Yes (Other)
  Sender: FDA-Public Use
  Company Number: US-009507513-1206USA01708

PATIENT
  Age: 18 Year
  Sex: Female

DRUGS (2)
  1. PRINIVIL [Suspect]
     Route: 048
  2. AMLODIPINE [Suspect]

REACTIONS (3)
  - Shock [Unknown]
  - Toxicity to various agents [Unknown]
  - Overdose [Unknown]
